FAERS Safety Report 5597209-0 (Version None)
Quarter: 2008Q1

REPORT INFORMATION
  Report Type: 
  Country: None (occurrence: None)
  Receive Date: 20080121
  Receipt Date: 20080111
  Transmission Date: 20080703
  Serious: Yes (Other)
  Sender: FDA-Public Use
  Company Number: PHEH2007US13999

PATIENT

DRUGS (2)
  1. FOCALIN XR [Suspect]
  2. CLONIDINE [Concomitant]

REACTIONS (1)
  - PANCREATITIS [None]
